FAERS Safety Report 25360948 (Version 1)
Quarter: 2025Q2

REPORT INFORMATION
  Report Type: Spontaneous
  Country: US (occurrence: US)
  Receive Date: 20250527
  Receipt Date: 20250527
  Transmission Date: 20250717
  Serious: Yes (Other)
  Sender: RANBAXY
  Company Number: US-MIMS-SUN-2025-USA-54566

PATIENT
  Sex: Male

DRUGS (1)
  1. FLUOROURACIL [Suspect]
     Active Substance: FLUOROURACIL
     Indication: Hyperkeratosis
     Dosage: UNK UNK, BID
     Route: 061

REACTIONS (4)
  - Cutaneous larva migrans [Unknown]
  - Disease recurrence [Unknown]
  - Haemorrhage [Unknown]
  - Tenderness [Unknown]
